FAERS Safety Report 5766971-6 (Version None)
Quarter: 2008Q2

REPORT INFORMATION
  Report Type: 
  Country: None (occurrence: None)
  Receive Date: 20080519
  Receipt Date: 20071030
  Transmission Date: 20081010
  Serious: No
  Sender: FDA-Public Use
  Company Number: 2007BH008662

PATIENT
  Age: 32 Year
  Sex: Female

DRUGS (2)
  1. HEPARIN SODIUM [Suspect]
     Indication: DRUG USE FOR UNKNOWN INDICATION
     Dosage: 7500 UNITS; EVERY DAY; SC
     Route: 058
     Dates: end: 20071030
  2. PRENATA VITAMINS [Concomitant]

REACTIONS (1)
  - URTICARIA [None]
